FAERS Safety Report 8716200 (Version 3)
Quarter: 2012Q4

REPORT INFORMATION
  Report Type: 
  Country: JP (occurrence: JP)
  Receive Date: 20120809
  Receipt Date: 20121116
  Transmission Date: 20130627
  Serious: Yes (Hospitalization, Other)
  Sender: FDA-Public Use
  Company Number: JP-MSD-2012SP017869

PATIENT
  Age: 78 Year
  Sex: Male
  Weight: 60 kg

DRUGS (10)
  1. PEGINTRON [Suspect]
     Indication: HEPATITIS C
     Dosage: 60 microgram, QW
     Route: 058
     Dates: start: 20120312, end: 20120319
  2. REBETOL [Suspect]
     Indication: HEPATITIS C
     Dosage: 1DF in morning, 2 DF in evening
     Route: 048
     Dates: start: 20120312, end: 20120319
  3. TELAVIC [Suspect]
     Indication: HEPATITIS C
     Dosage: 2250 mg, QD
     Route: 048
     Dates: start: 20120312, end: 20120319
  4. ADALAT CR [Concomitant]
     Indication: HYPERTENSION
     Dosage: 1-0-0-0n
     Route: 048
  5. NESINA [Concomitant]
     Indication: DIABETES MELLITUS
     Dosage: 1-0-0-0
     Route: 048
     Dates: end: 20120403
  6. NESINA [Concomitant]
     Dosage: 12.5 mg,qd
     Route: 048
     Dates: start: 20120404
  7. DIOVAN [Concomitant]
     Indication: PRODUCT USED FOR UNKNOWN INDICATION
     Dosage: 80 mg, qd
     Route: 048
  8. GASTER [Concomitant]
     Indication: PRODUCT USED FOR UNKNOWN INDICATION
     Dosage: 20 mg, bid
     Route: 048
  9. MAGMITT [Concomitant]
     Indication: PRODUCT USED FOR UNKNOWN INDICATION
     Dosage: 250 mg, tid
     Route: 048
  10. RHYTHMY [Concomitant]
     Indication: PRODUCT USED FOR UNKNOWN INDICATION
     Dosage: 1 DF, qd
     Route: 048

REACTIONS (1)
  - Renal failure acute [Not Recovered/Not Resolved]
